FAERS Safety Report 11347041 (Version 1)
Quarter: 2015Q3

REPORT INFORMATION
  Report Type: Spontaneous
  Country: IT (occurrence: IT)
  Receive Date: 20150806
  Receipt Date: 20150806
  Transmission Date: 20151125
  Serious: Yes (Death)
  Sender: FDA-Public Use
  Company Number: IT-ASTRAZENECA-2015SE74128

PATIENT
  Age: 30191 Day
  Sex: Male
  Weight: 60 kg

DRUGS (13)
  1. LANSOPRAZOLE. [Concomitant]
     Active Substance: LANSOPRAZOLE
     Route: 048
  2. INSULIN [Concomitant]
     Active Substance: INSULIN NOS
     Dosage: LANTUS 12 U
  3. LASIX [Concomitant]
     Active Substance: FUROSEMIDE
  4. TORVAST [Concomitant]
     Active Substance: ATORVASTATIN
     Dosage: 80 MG FILM COATED TABLETS
     Route: 048
  5. EUTIROX [Concomitant]
     Active Substance: LEVOTHYROXINE SODIUM
     Dosage: 50 MCG TABLETS
     Route: 048
  6. ADENURIC [Concomitant]
     Active Substance: FEBUXOSTAT
     Dosage: 80 MG FILM COATED TABLETS
     Route: 048
  7. KANRENOL [Concomitant]
     Active Substance: CANRENOATE POTASSIUM
     Dosage: 100 MG, HALF TAB
  8. GLICLAZIDE [Concomitant]
     Active Substance: GLICLAZIDE
     Route: 048
  9. INSULIN [Concomitant]
     Active Substance: INSULIN NOS
     Dosage: HUMALOG 5 U
  10. BRILIQUE [Suspect]
     Active Substance: TICAGRELOR
     Indication: ACUTE CORONARY SYNDROME
     Route: 048
     Dates: start: 20150226, end: 20150624
  11. ASA [Concomitant]
     Active Substance: ASPIRIN
     Route: 048
     Dates: start: 20150101, end: 20150716
  12. LOPRESSOR [Concomitant]
     Active Substance: METOPROLOL TARTRATE
     Route: 030
  13. TRIATEC [Concomitant]
     Active Substance: RAMIPRIL
     Dosage: 2.5 MG TABLETS
     Route: 048

REACTIONS (2)
  - Bone marrow failure [Fatal]
  - Septic shock [Fatal]

NARRATIVE: CASE EVENT DATE: 20150624
